FAERS Safety Report 24411876 (Version 1)
Quarter: 2024Q4

REPORT INFORMATION
  Report Type: Spontaneous
  Country: US (occurrence: US)
  Receive Date: 20241008
  Receipt Date: 20241008
  Transmission Date: 20250115
  Serious: No
  Sender: FRESENIUS KABI
  Company Number: US-FreseniusKabi-FK202414413

PATIENT
  Age: 67 Year
  Sex: Male

DRUGS (4)
  1. MORPHINE [Suspect]
     Active Substance: MORPHINE
     Indication: Spinal pain
     Dosage: ONGOING
     Route: 037
  2. MORPHINE [Suspect]
     Active Substance: MORPHINE
     Indication: Breakthrough pain
  3. PRIALT [Suspect]
     Active Substance: ZICONOTIDE ACETATE
     Indication: Spinal pain
     Dosage: ONGOING?INFUSION, 100 MCG/ML ?DAILY DOSE: UNKNOWN
     Route: 037
  4. PRIALT [Suspect]
     Active Substance: ZICONOTIDE ACETATE
     Indication: Breakthrough pain

REACTIONS (4)
  - Off label use [Unknown]
  - Depression [Unknown]
  - Urinary tract disorder [Unknown]
  - Gastrointestinal disorder [Unknown]
